FAERS Safety Report 19186665 (Version 1)
Quarter: 2021Q2

REPORT INFORMATION
  Report Type: Spontaneous
  Country: JP (occurrence: JP)
  Receive Date: 20210428
  Receipt Date: 20210428
  Transmission Date: 20210717
  Serious: Yes (Other)
  Sender: FDA-Public Use
  Company Number: JP-ASTRAZENECA-2021A348486

PATIENT
  Sex: Female

DRUGS (1)
  1. LYNPARZA [Suspect]
     Active Substance: OLAPARIB
     Indication: BREAST CANCER RECURRENT
     Route: 048

REACTIONS (4)
  - Metastases to peritoneum [Unknown]
  - Malignant neoplasm of uterine adnexa [Unknown]
  - Malignant ascites [Unknown]
  - Malignant peritoneal neoplasm [Unknown]
